FAERS Safety Report 6858244-5 (Version None)
Quarter: 2010Q3

REPORT INFORMATION
  Report Type: 
  Country: None (occurrence: None)
  Receive Date: 20100719
  Receipt Date: 20080204
  Transmission Date: 20110219
  Serious: Yes (Other)
  Sender: FDA-Public Use
  Company Number: US-PFIZER INC-2008012008

PATIENT
  Sex: Female
  Weight: 49.09 kg

DRUGS (6)
  1. CHANTIX [Suspect]
     Indication: SMOKING CESSATION THERAPY
     Dates: start: 20080101
  2. LIPITOR [Concomitant]
  3. SYNTHROID [Concomitant]
  4. PROZAC [Concomitant]
  5. PERCOCET [Concomitant]
  6. ASPIRIN [Concomitant]

REACTIONS (4)
  - INSOMNIA [None]
  - NAUSEA [None]
  - PALPITATIONS [None]
  - VOMITING [None]
